FAERS Safety Report 20961551 (Version 1)
Quarter: 2022Q2

REPORT INFORMATION
  Report Type: Report from Study
  Country: TW (occurrence: None)
  Receive Date: 20220615
  Receipt Date: 20220615
  Transmission Date: 20220721
  Serious: Yes (Hospitalization)
  Sender: FDA-Public Use
  Company Number: TW-ROCHE-3101533

PATIENT
  Age: 57 Year
  Sex: Male

DRUGS (12)
  1. ATEZOLIZUMAB [Suspect]
     Active Substance: ATEZOLIZUMAB
     Indication: Hepatocellular carcinoma
     Dosage: MOST RECENT DOSE ON 11/APR/2022
     Route: 041
     Dates: start: 20220321
  2. BEVACIZUMAB [Suspect]
     Active Substance: BEVACIZUMAB
     Indication: Hepatocellular carcinoma
     Dosage: MOST RECENT DOSE ON 11/APR/2022
     Route: 042
     Dates: start: 20220321
  3. ACETAMINOPHEN\TRAMADOL [Concomitant]
     Active Substance: ACETAMINOPHEN\TRAMADOL
  4. SENNOSIDES [Concomitant]
     Active Substance: SENNOSIDES
     Dosage: BEFORE SLEEP
  5. KASCOAL [Concomitant]
  6. MOSAD [Concomitant]
     Dosage: BEFORE MEAL
  7. INDAPAMIDE [Concomitant]
     Active Substance: INDAPAMIDE
  8. NIFEDIPINE [Concomitant]
     Active Substance: NIFEDIPINE
     Dosage: ONCE A DAY IN THE AFTERNOON
  9. TELMISARTAN [Concomitant]
     Active Substance: TELMISARTAN
  10. LANSOPRAZOLE [Concomitant]
     Active Substance: LANSOPRAZOLE
     Dosage: BEFORE MEAL
  11. DIETARY SUPPLEMENT\HERBALS\MILK THISTLE [Concomitant]
     Active Substance: DIETARY SUPPLEMENT\HERBALS\MILK THISTLE
  12. CARVEDILOL [Concomitant]
     Active Substance: CARVEDILOL

REACTIONS (1)
  - Biliary tract infection [Recovered/Resolved]

NARRATIVE: CASE EVENT DATE: 20220424
